FAERS Safety Report 8934306 (Version 1)
Quarter: 2012Q4

REPORT INFORMATION
  Report Type: 
  Country: RU (occurrence: RU)
  Receive Date: 20121129
  Receipt Date: 20121129
  Transmission Date: 20130627
  Serious: Yes (Hospitalization, Other)
  Sender: FDA-Public Use
  Company Number: RU-BAYER-2012-121532

PATIENT
  Age: 47 Year
  Sex: Female

DRUGS (2)
  1. MIRENA [Suspect]
     Indication: ENDOMETRIOSIS
     Dosage: 20 mcg/24hr, CONT
     Route: 015
     Dates: start: 201209
  2. MIRENA [Suspect]
     Indication: UTERINE MYOMA

REACTIONS (8)
  - Vaginal haemorrhage [Recovered/Resolved]
  - Genital haemorrhage [Recovered/Resolved]
  - Off label use [None]
  - Hypertensive crisis [Recovered/Resolved]
  - Headache [Recovered/Resolved]
  - Vomiting [Recovered/Resolved]
  - Blood pressure increased [Recovered/Resolved]
  - Adjustment disorder [Recovered/Resolved]
